FAERS Safety Report 6252282-1 (Version None)
Quarter: 2009Q3

REPORT INFORMATION
  Report Type: 
  Country: None (occurrence: None)
  Receive Date: 20090701
  Receipt Date: 20090619
  Transmission Date: 20100115
  Serious: Yes (Other)
  Sender: FDA-Public Use
  Company Number: NL-ASTRAZENECA-2009SE03003

PATIENT
  Sex: Female

DRUGS (1)
  1. PULMICORT-100 [Suspect]
     Route: 055
     Dates: start: 20060101, end: 20090501

REACTIONS (2)
  - LIP SWELLING [None]
  - ORAL DISCOMFORT [None]
